FAERS Safety Report 24905749 (Version 1)
Quarter: 2025Q1

REPORT INFORMATION
  Report Type: Report from Study
  Country: US (occurrence: US)
  Receive Date: 20250130
  Receipt Date: 20250130
  Transmission Date: 20250409
  Serious: No
  Sender: HRA PHARMA
  Company Number: US-ORG100014127-2024000367

PATIENT
  Age: 69 Year
  Sex: Male

DRUGS (8)
  1. METOPIRONE [Suspect]
     Active Substance: METYRAPONE
     Indication: Carcinoid tumour
     Dosage: 4 CAPSULES FOUR TIMES PER DAY
     Route: 048
     Dates: start: 20241129, end: 20241205
  2. AMIODARONE [Concomitant]
     Active Substance: AMIODARONE
     Indication: Product used for unknown indication
  3. CALCIUM CITRATE TAB 200MG [Concomitant]
     Indication: Product used for unknown indication
  4. GLIMEPIRIDE TAB 4MG [Concomitant]
     Indication: Product used for unknown indication
  5. MAGNESIUM CAP 300MG [Concomitant]
     Indication: Product used for unknown indication
  6. METOPROL SUCCINATE TAB 25MG ER [Concomitant]
     Indication: Product used for unknown indication
  7. PANTOPRAZOLE TAB 40MG [Concomitant]
     Indication: Product used for unknown indication
  8. POTASSIUM TAB 99MG [Concomitant]
     Indication: Product used for unknown indication

REACTIONS (1)
  - Off label use [Unknown]

NARRATIVE: CASE EVENT DATE: 20241129
